FAERS Safety Report 6259565-X (Version None)
Quarter: 2009Q3

REPORT INFORMATION
  Report Type: 
  Country: None (occurrence: None)
  Receive Date: 20090708
  Receipt Date: 20090625
  Transmission Date: 20100115
  Serious: Yes (Hospitalization)
  Sender: FDA-Public Use
  Company Number: FR-PFIZER INC-2009231896

PATIENT
  Age: 40 Year

DRUGS (1)
  1. SALAZOPYRIN [Suspect]
     Dosage: 1 DF, 1X/DAY
     Route: 048
     Dates: start: 20090401, end: 20090401

REACTIONS (3)
  - DYSPNOEA [None]
  - HYPERHIDROSIS [None]
  - TACHYCARDIA [None]
